FAERS Safety Report 6659839-4 (Version None)
Quarter: 2010Q1

REPORT INFORMATION
  Report Type: 
  Country: None (occurrence: None)
  Receive Date: 20100330
  Receipt Date: 20100330
  Transmission Date: 20100710
  Serious: Yes (Hospitalization)
  Sender: FDA-Public Use
  Company Number: None

PATIENT
  Sex: Male
  Weight: 71.7 kg

DRUGS (1)
  1. ALIMTA [Suspect]
     Dosage: 900 MG
     Dates: end: 20100304

REACTIONS (6)
  - ASTHENIA [None]
  - FATIGUE [None]
  - OEDEMA PERIPHERAL [None]
  - PANCYTOPENIA [None]
  - PERICARDIAL EFFUSION [None]
  - PLEURAL EFFUSION [None]
